FAERS Safety Report 6867176-8 (Version None)
Quarter: 2010Q3

REPORT INFORMATION
  Report Type: 
  Country: None (occurrence: None)
  Receive Date: 20100722
  Receipt Date: 20100716
  Transmission Date: 20110219
  Serious: Yes (Death, Hospitalization)
  Sender: FDA-Public Use
  Company Number: A0871710A

PATIENT
  Age: 68 Year
  Sex: Female

DRUGS (1)
  1. AVANDIA [Suspect]
     Dosage: 4MG TWICE PER DAY
     Route: 048
     Dates: start: 20010212, end: 20020501

REACTIONS (4)
  - CRYPTOGENIC CIRRHOSIS [None]
  - ENDOCARDITIS BACTERIAL [None]
  - RENAL FAILURE [None]
  - SEPSIS [None]
